FAERS Safety Report 6835907-9 (Version None)
Quarter: 2010Q3

REPORT INFORMATION
  Report Type: 
  Country: None (occurrence: None)
  Receive Date: 20100713
  Receipt Date: 20100708
  Transmission Date: 20110219
  Serious: Yes (Other)
  Sender: FDA-Public Use
  Company Number: US-ROXANE LABORATORIES, INC.-2010-RO-00819RO

PATIENT
  Age: 64 Year
  Sex: Male

DRUGS (2)
  1. PREDNISONE TAB [Suspect]
     Dosage: 20 MG
     Route: 048
  2. SOLIRIS [Suspect]
     Indication: PAROXYSMAL NOCTURNAL HAEMOGLOBINURIA
     Route: 042

REACTIONS (3)
  - BLOOD GLUCOSE FLUCTUATION [None]
  - DIZZINESS [None]
  - VERTIGO [None]
